FAERS Safety Report 12069123 (Version 1)
Quarter: 2016Q1

REPORT INFORMATION
  Report Type: Report from Study
  Country: NL (occurrence: NL)
  Receive Date: 20160211
  Receipt Date: 20160211
  Transmission Date: 20160526
  Serious: Yes (Other)
  Sender: FDA-Public Use
  Company Number: NL-AMGEN-NLDSL2016016130

PATIENT
  Age: 59 Year
  Sex: Female

DRUGS (1)
  1. NEULASTA [Suspect]
     Active Substance: PEGFILGRASTIM
     Indication: PROPHYLAXIS
     Dosage: 10 MG/ML, PER 3 WEEKS
     Route: 058

REACTIONS (4)
  - Pallor [Recovering/Resolving]
  - Feeling abnormal [Recovering/Resolving]
  - Hyperhidrosis [Recovering/Resolving]
  - Chest pain [Recovering/Resolving]

NARRATIVE: CASE EVENT DATE: 20160204
